FAERS Safety Report 15647013 (Version 1)
Quarter: 2018Q4

REPORT INFORMATION
  Report Type: Spontaneous
  Country: JP (occurrence: JP)
  Receive Date: 20181122
  Receipt Date: 20181122
  Transmission Date: 20190205
  Serious: Yes (Hospitalization, Other)
  Sender: FDA-Public Use
  Company Number: JP-ROCHE-2218417

PATIENT
  Age: 60 Year
  Sex: Female

DRUGS (1)
  1. LUCENTIS [Suspect]
     Active Substance: RANIBIZUMAB
     Indication: AGE-RELATED MACULAR DEGENERATION
     Route: 031
     Dates: start: 20180719

REACTIONS (4)
  - Vascular rupture [Recovered/Resolved]
  - Visual acuity reduced [Unknown]
  - Polypoidal choroidal vasculopathy [Unknown]
  - Visual field defect [Recovering/Resolving]

NARRATIVE: CASE EVENT DATE: 20180804
